FAERS Safety Report 8848800 (Version 1)
Quarter: 2012Q4

REPORT INFORMATION
  Report Type: Spontaneous
  Country: US (occurrence: None)
  Receive Date: 20121017
  Receipt Date: 20121017
  Transmission Date: 20130627
  Serious: Yes (Life-Threatening, Hospitalization)
  Sender: FDA-Public Use
  Company Number: None

PATIENT
  Age: 47 Year
  Sex: Male
  Weight: 76 kg

DRUGS (1)
  1. VINCRISTINE [Suspect]
     Indication: GLIOBLASTOMA MULTIFORME
     Route: 040
     Dates: start: 20121011, end: 20121011

REACTIONS (1)
  - Grand mal convulsion [None]
